FAERS Safety Report 12309488 (Version 3)
Quarter: 2017Q2

REPORT INFORMATION
  Report Type: Spontaneous
  Country: US (occurrence: US)
  Receive Date: 20160427
  Receipt Date: 20170607
  Transmission Date: 20170830
  Serious: No
  Sender: FDA-Public Use
  Company Number: US-PFIZER INC-2016151494

PATIENT
  Age: 48 Year
  Sex: Male
  Weight: 75.74 kg

DRUGS (3)
  1. SUTENT [Suspect]
     Active Substance: SUNITINIB MALATE
     Indication: GASTROINTESTINAL STROMAL TUMOUR
     Dosage: 50 MG, CYCLIC (4 WEEKS ON/2 WEEKS OFF, DAYS 1-28  EVERY 42 DAYS )
     Route: 048
     Dates: start: 20151029
  2. SUTENT [Suspect]
     Active Substance: SUNITINIB MALATE
     Dosage: 37.5 MG, UNK
     Dates: start: 20160722
  3. SUTENT [Suspect]
     Active Substance: SUNITINIB MALATE
     Dosage: 37.5 MG, CYCLIC [D 1-28 Q 42 DAYS]
     Route: 048
     Dates: start: 20151029, end: 201706

REACTIONS (5)
  - Dry skin [Unknown]
  - Peripheral swelling [Unknown]
  - Drug dose omission [Unknown]
  - Diarrhoea [Unknown]
  - Pain in extremity [Unknown]
